FAERS Safety Report 7922589-8 (Version None)
Quarter: 2011Q4

REPORT INFORMATION
  Report Type: 
  Country: None (occurrence: None)
  Receive Date: 20111117
  Receipt Date: 20101012
  Transmission Date: 20120403
  Serious: No
  Sender: FDA-Public Use
  Company Number: US-ALLERGAN-1013122US

PATIENT
  Age: 42 Year
  Sex: Male

DRUGS (3)
  1. LUMIGAN [Concomitant]
     Indication: INTRAOCULAR PRESSURE TEST
     Dosage: 1 GTT, BID
     Route: 047
  2. ALREX                              /00595201/ [Concomitant]
     Indication: EYE INFLAMMATION
     Dosage: UNK
     Route: 047
     Dates: start: 20100901
  3. COMBIGAN [Suspect]
     Indication: INTRAOCULAR PRESSURE TEST
     Dosage: 1 GTT, BID
     Route: 047
     Dates: end: 20101011

REACTIONS (2)
  - EYE IRRITATION [None]
  - OCULAR HYPERAEMIA [None]
